FAERS Safety Report 16284399 (Version 3)
Quarter: 2019Q2

REPORT INFORMATION
  Report Type: Report from Study
  Country: ES (occurrence: ES)
  Receive Date: 20190508
  Receipt Date: 20190611
  Transmission Date: 20190711
  Serious: Yes (Hospitalization)
  Sender: FDA-Public Use
  Company Number: ES-ROCHE-2312193

PATIENT
  Age: 61 Year
  Sex: Female
  Weight: 66.3 kg

DRUGS (6)
  1. TRASTUZUMAB. [Suspect]
     Active Substance: TRASTUZUMAB
     Indication: HER-2 POSITIVE BREAST CANCER
     Dosage: NUMBER OF CYCLES- 11, DAY 1?ON 23/MAY/2019, SHE RECEIVED THE MOST RECENT DOSE OF TRASTUZUMAB (600 MG
     Route: 058
     Dates: start: 20190227
  2. CARBOPLATINO [Suspect]
     Active Substance: CARBOPLATIN
     Indication: HER-2 POSITIVE BREAST CANCER
     Dosage: ON 23/MAY/2019, SHE RECEIVED THE MOST RECENT DOSE OF CARBOPLATIN (630 MG) PRIOR TO SERIOUS ADVERSE E
     Route: 042
     Dates: start: 20190227
  3. PERTUZUMAB. [Suspect]
     Active Substance: PERTUZUMAB
     Indication: HER-2 POSITIVE BREAST CANCER
     Dosage: LOADING DOSE
     Route: 042
     Dates: start: 20190227
  4. PERTUZUMAB. [Suspect]
     Active Substance: PERTUZUMAB
     Dosage: MAINTENANCE DOSE?NUMBER OF CYCLES- 11, DAY 1?ON SHE RECEIVED THE MOST RECENT DOSE OF PERTUZUMAB (420
     Route: 042
  5. DOCETAXEL. [Suspect]
     Active Substance: DOCETAXEL
     Indication: HER-2 POSITIVE BREAST CANCER
     Dosage: 130 MG/ 97 MG
     Route: 042
     Dates: start: 20190227
  6. SIMVASTATIN. [Concomitant]
     Active Substance: SIMVASTATIN
     Indication: DYSLIPIDAEMIA

REACTIONS (3)
  - Gastrointestinal toxicity [Recovering/Resolving]
  - Nausea [Recovering/Resolving]
  - Vomiting [Recovering/Resolving]

NARRATIVE: CASE EVENT DATE: 20190402
